FAERS Safety Report 5223519-2 (Version None)
Quarter: 2007Q1

REPORT INFORMATION
  Report Type: 
  Country: None (occurrence: None)
  Receive Date: 20070125
  Receipt Date: 20070112
  Transmission Date: 20070707
  Serious: Yes (Death)
  Sender: FDA-Public Use
  Company Number: HQWYE764111DEC06

PATIENT
  Age: 35 Year
  Sex: Male
  Weight: 95.34 kg

DRUGS (4)
  1. EFFEXOR XR [Suspect]
     Indication: DEPRESSION
     Dosage: 75 MG 1X PER 1 DAY, ORAL
     Route: 048
     Dates: start: 20040601, end: 20060319
  2. COCAINE (COCAINE, ) [Suspect]
  3. ATENOLOL [Concomitant]
  4. LASIX [Concomitant]

REACTIONS (2)
  - ARTERIOSCLEROSIS [None]
  - DRUG SCREEN POSITIVE [None]
